FAERS Safety Report 5561729-5 (Version None)
Quarter: 2007Q4

REPORT INFORMATION
  Report Type: 
  Country: None (occurrence: None)
  Receive Date: 20071215
  Receipt Date: 20071011
  Transmission Date: 20080405
  Serious: No
  Sender: FDA-Public Use
  Company Number: US-AMGEN-KDL247625

PATIENT
  Sex: Male

DRUGS (1)
  1. ENBREL [Suspect]
     Indication: ANKYLOSING SPONDYLITIS
     Route: 058
     Dates: start: 20070910

REACTIONS (4)
  - COUGH [None]
  - LYMPHADENOPATHY [None]
  - NASAL CONGESTION [None]
  - PHARYNGITIS STREPTOCOCCAL [None]
